FAERS Safety Report 4311820-6 (Version None)
Quarter: 2004Q1

REPORT INFORMATION
  Report Type: 
  Country: None (occurrence: None)
  Receive Date: 20040304
  Receipt Date: 20040227
  Transmission Date: 20041129
  Serious: Yes (Hospitalization)
  Sender: FDA-Public Use
  Company Number: WAES 0403USA00102

PATIENT
  Age: 75 Year
  Sex: Female

DRUGS (8)
  1. FOSAMAX [Suspect]
     Indication: OSTEOPOROSIS
     Route: 048
     Dates: start: 20031203, end: 20040219
  2. BUFFERIN [Concomitant]
     Indication: PROPHYLAXIS
     Route: 048
  3. OPALMON [Concomitant]
     Route: 048
  4. SELOKEN [Concomitant]
     Indication: HYPERTENSION
     Route: 048
  5. SUNRHYTHM [Concomitant]
     Indication: ARRHYTHMIA
     Route: 048
  6. MEVALOTIN [Concomitant]
     Indication: HYPERLIPIDAEMIA
     Route: 048
  7. RHYTHMY [Concomitant]
     Indication: INSOMNIA
     Route: 048
  8. TERNELIN [Concomitant]
     Indication: BACK PAIN
     Route: 048

REACTIONS (5)
  - ALANINE AMINOTRANSFERASE INCREASED [None]
  - ASPARTATE AMINOTRANSFERASE INCREASED [None]
  - BLOOD LACTATE DEHYDROGENASE INCREASED [None]
  - GAMMA-GLUTAMYLTRANSFERASE INCREASED [None]
  - HEPATIC FUNCTION ABNORMAL [None]
